FAERS Safety Report 5000603-X (Version None)
Quarter: 2006Q2

REPORT INFORMATION
  Report Type: 
  Country: None (occurrence: None)
  Receive Date: 20060512
  Receipt Date: 20060503
  Transmission Date: 20061013
  Serious: Yes (Hospitalization)
  Sender: FDA-Public Use
  Company Number: FR-JNJFOC-20060501101

PATIENT
  Age: 31 Year
  Sex: Male

DRUGS (2)
  1. REMICADE [Suspect]
     Dosage: 14TH INFUSION
     Route: 042
  2. REMICADE [Suspect]
     Indication: ANKYLOSING SPONDYLITIS
     Route: 042

REACTIONS (1)
  - THYROID GLAND CANCER [None]
